FAERS Safety Report 15006574 (Version 1)
Quarter: 2018Q2

REPORT INFORMATION
  Report Type: Report from Study
  Country: US (occurrence: US)
  Receive Date: 20180613
  Receipt Date: 20180613
  Transmission Date: 20180711
  Serious: Yes (Death)
  Sender: FDA-Public Use
  Company Number: US-US WORLDMEDS, LLC-USW201709-001295

PATIENT
  Age: 73 Year
  Sex: Female
  Weight: 61.23 kg

DRUGS (5)
  1. AMANTADINE. [Concomitant]
     Active Substance: AMANTADINE HYDROCHLORIDE
  2. APOKYN [Suspect]
     Active Substance: APOMORPHINE HYDROCHLORIDE
     Indication: PARKINSON^S DISEASE
     Route: 058
     Dates: start: 20170131
  3. TRIMETHYLBENZAMIDE [Concomitant]
     Indication: NAUSEA
     Dates: start: 20170128
  4. ROPINIROLE. [Concomitant]
     Active Substance: ROPINIROLE
  5. LEVODOPA/CARBADOPA/ENTACAPONE [Concomitant]

REACTIONS (1)
  - Cardiac failure [Fatal]

NARRATIVE: CASE EVENT DATE: 20170725
